FAERS Safety Report 18560351 (Version 2)
Quarter: 2023Q4

REPORT INFORMATION
  Report Type: Spontaneous
  Country: FI (occurrence: None)
  Receive Date: 20201130
  Receipt Date: 20231205
  Transmission Date: 20240110
  Serious: Yes (Death, Congenital Anomaly)
  Sender: FDA-Public Use
  Company Number: 2020SF55986

PATIENT

DRUGS (2)
  1. DAPAGLIFLOZIN [Suspect]
     Active Substance: DAPAGLIFLOZIN
     Indication: Type 2 diabetes mellitus
     Route: 064
     Dates: end: 20200909
  2. ASPIRIN [Concomitant]
     Active Substance: ASPIRIN
     Route: 064

REACTIONS (3)
  - Maternal exposure during pregnancy [Fatal]
  - Heart disease congenital [Fatal]
  - Abortion induced [Fatal]

NARRATIVE: CASE EVENT DATE: 20201026
